FAERS Safety Report 8473588-1 (Version None)
Quarter: 2012Q2

REPORT INFORMATION
  Report Type: 
  Country: None (occurrence: None)
  Receive Date: 20120628
  Receipt Date: 20110808
  Transmission Date: 20120825
  Serious: Yes (Other)
  Sender: FDA-Public Use
  Company Number: US-MYLANLABS-2011S1012711

PATIENT
  Age: 22 Year
  Sex: Male

DRUGS (9)
  1. WELLBUTRIN SR [Concomitant]
  2. SINGULAIR [Concomitant]
  3. ATIVAN [Concomitant]
     Dates: start: 20110301
  4. HALDOL [Concomitant]
  5. INVEGA [Concomitant]
  6. COGENTIN [Concomitant]
  7. CLONIDINE [Concomitant]
  8. CLOZAPINE [Suspect]
     Indication: BIPOLAR DISORDER
     Route: 048
     Dates: end: 20110607
  9. KLONOPIN [Concomitant]

REACTIONS (1)
  - GRANULOCYTOPENIA [None]
